FAERS Safety Report 17319549 (Version 1)
Quarter: 2020Q1

REPORT INFORMATION
  Report Type: Spontaneous
  Country: MY (occurrence: MY)
  Receive Date: 20200125
  Receipt Date: 20200125
  Transmission Date: 20200409
  Serious: Yes (Other)
  Sender: FDA-Public Use
  Company Number: MY-ROCHE-2529362

PATIENT
  Sex: Male

DRUGS (15)
  1. MABTHERA [Suspect]
     Active Substance: RITUXIMAB
     Indication: DIFFUSE LARGE B-CELL LYMPHOMA
     Route: 041
     Dates: start: 20111020
  2. VINCRISTINE [Suspect]
     Active Substance: VINCRISTINE
     Indication: DIFFUSE LARGE B-CELL LYMPHOMA
     Dosage: RCHOP
     Route: 065
     Dates: start: 20111020
  3. CYTARABINE. [Suspect]
     Active Substance: CYTARABINE
     Indication: DIFFUSE LARGE B-CELL LYMPHOMA
     Route: 065
     Dates: start: 20111020
  4. METHOTREXATE. [Suspect]
     Active Substance: METHOTREXATE
     Indication: DIFFUSE LARGE B-CELL LYMPHOMA
     Dosage: HYPERCVAD-R
     Route: 065
     Dates: start: 20111112, end: 20120305
  5. CYCLOPHOSPHAMIDE. [Suspect]
     Active Substance: CYCLOPHOSPHAMIDE
     Indication: DIFFUSE LARGE B-CELL LYMPHOMA
     Dosage: RCHOP
     Route: 065
     Dates: start: 20111020
  6. VINCRISTINE [Suspect]
     Active Substance: VINCRISTINE
     Dosage: HYPERCVAD-R
     Route: 065
     Dates: start: 20111112, end: 20120305
  7. CARBOPLATIN. [Suspect]
     Active Substance: CARBOPLATIN
     Indication: DIFFUSE LARGE B-CELL LYMPHOMA
     Route: 065
     Dates: start: 20120417
  8. DEXAMETHASONE. [Suspect]
     Active Substance: DEXAMETHASONE
     Indication: DIFFUSE LARGE B-CELL LYMPHOMA
     Dosage: HYPERCVAD-R
     Route: 065
     Dates: start: 20111112, end: 20120305
  9. CYTARABINE. [Suspect]
     Active Substance: CYTARABINE
     Dosage: HYPERCVAD-R
     Route: 065
     Dates: start: 20111112, end: 20120305
  10. MABTHERA [Suspect]
     Active Substance: RITUXIMAB
     Route: 041
     Dates: start: 20111112, end: 20120305
  11. DOXORUBICIN [Suspect]
     Active Substance: DOXORUBICIN
     Dosage: HYPERCVAD-R
     Route: 065
     Dates: start: 20111112, end: 20120305
  12. CYCLOPHOSPHAMIDE. [Suspect]
     Active Substance: CYCLOPHOSPHAMIDE
     Dosage: HYPERCVAD-R
     Route: 065
     Dates: start: 20111112, end: 20120305
  13. DOXORUBICIN [Suspect]
     Active Substance: DOXORUBICIN
     Indication: DIFFUSE LARGE B-CELL LYMPHOMA
     Dosage: RCHOP
     Route: 065
     Dates: start: 20111020
  14. PREDNISOLONE. [Suspect]
     Active Substance: PREDNISOLONE
     Indication: DIFFUSE LARGE B-CELL LYMPHOMA
     Dosage: RCHOP
     Route: 065
     Dates: start: 20111020
  15. CYTARABINE. [Suspect]
     Active Substance: CYTARABINE
     Route: 065
     Dates: start: 20120417

REACTIONS (3)
  - Intentional product misuse [Unknown]
  - Disease recurrence [Unknown]
  - Off label use [Unknown]
